FAERS Safety Report 4273651-5 (Version None)
Quarter: 2004Q1

REPORT INFORMATION
  Report Type: 
  Country: None (occurrence: None)
  Receive Date: 20040116
  Receipt Date: 20040116
  Transmission Date: 20041129
  Serious: Yes (Death)
  Sender: FDA-Public Use
  Company Number: None

PATIENT
  Sex: Male

DRUGS (8)
  1. GEODON [Suspect]
     Indication: BIPOLAR DISORDER
     Dosage: 80 MG B.I.D. ORAL
     Route: 048
     Dates: start: 20030617, end: 20040114
  2. SEROQUEL [Concomitant]
  3. VALIUM [Concomitant]
  4. LITHOBID [Concomitant]
  5. PROPRANOLOL [Concomitant]
  6. GLUCOPHAGE [Concomitant]
  7. MONOPRIL [Concomitant]
  8. SYNTHROID [Concomitant]

REACTIONS (2)
  - CIRCULATORY COLLAPSE [None]
  - SUDDEN DEATH [None]
